FAERS Safety Report 4945018-5 (Version None)
Quarter: 2006Q1

REPORT INFORMATION
  Report Type: 
  Country: None (occurrence: None)
  Receive Date: 20060117
  Receipt Date: 20050705
  Transmission Date: 20060701
  Serious: Yes (Hospitalization)
  Sender: FDA-Public Use
  Company Number: A03200502008

PATIENT
  Age: 64 Year
  Sex: Male
  Weight: 99.7913 kg

DRUGS (1)
  1. PLAVIX [Suspect]
     Indication: DRUG USE FOR UNKNOWN INDICATION
     Dosage: 75 MG ONCE-ORAL
     Route: 048
     Dates: start: 20050629

REACTIONS (3)
  - CARDIAC DISORDER [None]
  - HAEMATOCHEZIA [None]
  - MYOCARDIAL INFARCTION [None]
